FAERS Safety Report 15801439 (Version 1)
Quarter: 2019Q1

REPORT INFORMATION
  Report Type: Spontaneous
  Country: US (occurrence: US)
  Receive Date: 20190109
  Receipt Date: 20190109
  Transmission Date: 20190417
  Serious: No
  Sender: FDA-Public Use
  Company Number: US-DRREDDYS-USA/USA/17/0094781

PATIENT
  Age: 56 Year
  Sex: Male
  Weight: 82.5 kg

DRUGS (1)
  1. HABITROL [Suspect]
     Active Substance: NICOTINE
     Indication: SMOKING CESSATION THERAPY
     Route: 065

REACTIONS (4)
  - Nicotine dependence [Unknown]
  - Product adhesion issue [Unknown]
  - Drug effect decreased [Unknown]
  - Product dose omission [Unknown]
